FAERS Safety Report 4707519-4 (Version None)
Quarter: 2005Q3

REPORT INFORMATION
  Report Type: 
  Country: None (occurrence: None)
  Receive Date: 20050701
  Receipt Date: 20050622
  Transmission Date: 20060218
  Serious: Yes (Death, Life-Threatening)
  Sender: FDA-Public Use
  Company Number: 2005078698

PATIENT
  Age: 65 Year
  Sex: Female
  Weight: 44 kg

DRUGS (8)
  1. IRINOTECAN HCL [Suspect]
     Indication: COLON CANCER
     Dosage: 130 MG (130 MG, INTERMITTENT), INTRAVENOUS
     Route: 042
     Dates: start: 20050408, end: 20050428
  2. IRINOTECAN HCL [Suspect]
     Indication: METASTATIC NEOPLASM
     Dosage: 130 MG (130 MG, INTERMITTENT), INTRAVENOUS
     Route: 042
     Dates: start: 20050408, end: 20050428
  3. FLUOROURACIL [Suspect]
     Indication: COLON CANCER
     Dosage: 675 MG (675 MG, INTERMITTENT), INTRAVENOUS
     Route: 042
     Dates: start: 20050408, end: 20050428
  4. CALCIUM LEVOFOLINATE (CALCIUM LEVOFOLINATE) [Suspect]
     Indication: COLON CANCER
     Dosage: 25 MG (25 MG, INTERMITTENT), INTRAVENOUS
     Route: 042
     Dates: start: 20050408, end: 20050428
  5. DECADRON [Concomitant]
  6. ENTERONON R (BIFIDOBACTERIUM BIFIDUM, LACTOBACILLUS ACIDOPHILUS, LACTO [Concomitant]
  7. MAGNESIUM OXIDE (MAGNESIUM OXIDE) [Concomitant]
  8. DAIKENTYUTO (HERBAL EXTRACTS NOS) [Concomitant]

REACTIONS (16)
  - ASCITES [None]
  - BLOOD PRESSURE DECREASED [None]
  - BODY TEMPERATURE INCREASED [None]
  - BONE MARROW DEPRESSION [None]
  - BRADYCARDIA [None]
  - CARDIO-RESPIRATORY ARREST [None]
  - CONSTIPATION [None]
  - CYANOSIS [None]
  - DIARRHOEA [None]
  - DISSEMINATED INTRAVASCULAR COAGULATION [None]
  - FLUID OVERLOAD [None]
  - LEUKOPENIA [None]
  - MELAENA [None]
  - OXYGEN SATURATION DECREASED [None]
  - THROMBOCYTOPENIA [None]
  - VOMITING [None]
